FAERS Safety Report 6465030-7 (Version None)
Quarter: 2009Q4

REPORT INFORMATION
  Report Type: 
  Country: None (occurrence: None)
  Receive Date: 20091201
  Receipt Date: 20091120
  Transmission Date: 20100525
  Serious: Yes (Other)
  Sender: FDA-Public Use
  Company Number: RS-PFIZER INC-2009233701

PATIENT
  Age: 11 Year
  Sex: Male

DRUGS (7)
  1. FENTANYL CITRATE [Suspect]
     Dosage: 1 UG/KG
  2. METHYLPREDNISOLONE AND METHYLPREDNISOLONE ACETATE AND METHYLPREDNISOLO [Suspect]
     Dosage: UNK
  3. THIOPENTAL [Concomitant]
     Dosage: 5 MG/KG, UNK
  4. SUCCINYLCHOLINE CHLORIDE [Concomitant]
     Dosage: 1 MG/KG, UNK
  5. OXYGEN [Concomitant]
  6. NITROUS OXIDE [Concomitant]
  7. VECURONIUM [Concomitant]
     Dosage: 1 MG/KG, UNK

REACTIONS (2)
  - ANAPHYLACTIC REACTION [None]
  - BRONCHOSPASM [None]
